FAERS Safety Report 5343437-9 (Version None)
Quarter: 2007Q2

REPORT INFORMATION
  Report Type: 
  Country: None (occurrence: None)
  Receive Date: 20070531
  Receipt Date: 20070521
  Transmission Date: 20071010
  Serious: Yes (Death)
  Sender: FDA-Public Use
  Company Number: TAP2007Q00690

PATIENT
  Age: 96 Year
  Sex: Male

DRUGS (8)
  1. LUPRON DEPOT-4 [Suspect]
     Indication: PROSTATE CANCER
     Dosage: 30 MG, 1 IN 4 M
     Dates: start: 20051019, end: 20070212
  2. PREDNISONE TAB [Concomitant]
  3. PANTOPRAZOLE SODIUM [Concomitant]
  4. FUROSEMIDE [Concomitant]
  5. METOPROLOL TARTRATE [Concomitant]
  6. DOCUSATE (DOCUSATE) [Concomitant]
  7. CALCIUM (CALCIUM) [Concomitant]
  8. TYLENOL [Concomitant]

REACTIONS (1)
  - MYOCARDIAL INFARCTION [None]
